FAERS Safety Report 10142383 (Version 2)
Quarter: 2014Q2

REPORT INFORMATION
  Report Type: Spontaneous
  Country: BE (occurrence: BE)
  Receive Date: 20140430
  Receipt Date: 20140505
  Transmission Date: 20141212
  Serious: Yes (Hospitalization)
  Sender: FDA-Public Use
  Company Number: BE-ROCHE-1389147

PATIENT
  Age: 57 Year
  Sex: Female
  Weight: 104 kg

DRUGS (4)
  1. ZELBORAF [Suspect]
     Indication: METASTATIC MALIGNANT MELANOMA
     Route: 048
     Dates: start: 20140321, end: 20140424
  2. ALDACTAZINE [Concomitant]
     Route: 065
     Dates: end: 20140329
  3. AMLODIPINE [Concomitant]
     Route: 065
     Dates: start: 20140329
  4. ZALDIAR [Concomitant]
     Route: 065

REACTIONS (3)
  - Pericardial effusion [Recovering/Resolving]
  - Exposure to contaminated air [Unknown]
  - Hypertension [Unknown]
